FAERS Safety Report 15117058 (Version 1)
Quarter: 2018Q3

REPORT INFORMATION
  Report Type: Spontaneous
  Country: FR (occurrence: FR)
  Receive Date: 20180706
  Receipt Date: 20180706
  Transmission Date: 20181010
  Serious: Yes (Hospitalization, Other)
  Sender: FDA-Public Use
  Company Number: FR-SA-2018SA171087

PATIENT
  Age: 16 Year
  Sex: Female
  Weight: 50 kg

DRUGS (6)
  1. PARACETAMOL [Suspect]
     Active Substance: ACETAMINOPHEN
     Route: 042
  2. URBANYL [Suspect]
     Active Substance: CLOBAZAM
     Route: 048
  3. ESOMEPRAZOLE [Suspect]
     Active Substance: ESOMEPRAZOLE
     Route: 048
  4. CARBAMAZEPINE. [Suspect]
     Active Substance: CARBAMAZEPINE
     Route: 048
  5. RIFADINE [Suspect]
     Active Substance: RIFAMPIN
     Route: 048
  6. FLUCONAZOLE. [Suspect]
     Active Substance: FLUCONAZOLE
     Route: 042

REACTIONS (2)
  - Cholestasis [Unknown]
  - Hepatocellular injury [Unknown]

NARRATIVE: CASE EVENT DATE: 20091104
